FAERS Safety Report 13452895 (Version 2)
Quarter: 2017Q2

REPORT INFORMATION
  Report Type: Spontaneous
  Country: FR (occurrence: FR)
  Receive Date: 20170418
  Receipt Date: 20170524
  Transmission Date: 20170830
  Serious: Yes (Life-Threatening, Hospitalization, Other)
  Sender: FDA-Public Use
  Company Number: FR-ELI_LILLY_AND_COMPANY-FR201704003755

PATIENT
  Age: 0 Day
  Weight: 4.6 kg

DRUGS (1)
  1. ZYPREXA [Suspect]
     Active Substance: OLANZAPINE
     Indication: PRODUCT USED FOR UNKNOWN INDICATION
     Dosage: UNK, UNKNOWN
     Route: 015

REACTIONS (17)
  - Tremor [Unknown]
  - Drug withdrawal syndrome neonatal [Recovering/Resolving]
  - Encephalopathy [Unknown]
  - Coma [Unknown]
  - Hypotonia neonatal [Unknown]
  - Hypoglycaemia neonatal [Unknown]
  - Toxicity to various agents [Unknown]
  - Lung infection [Unknown]
  - Foetal heart rate decreased [Unknown]
  - Neonatal respiratory distress syndrome [Recovered/Resolved]
  - Apgar score low [Unknown]
  - Foetal exposure during pregnancy [Unknown]
  - Pulmonary hypertension [Recovered/Resolved]
  - Large for dates baby [Unknown]
  - Cardiac murmur [Unknown]
  - Cardiac septal hypertrophy [Unknown]
  - Vascular shunt [Unknown]

NARRATIVE: CASE EVENT DATE: 20170321
